FAERS Safety Report 7444613-1 (Version None)
Quarter: 2011Q2

REPORT INFORMATION
  Report Type: 
  Country: None (occurrence: None)
  Receive Date: 20110429
  Receipt Date: 20110422
  Transmission Date: 20111010
  Serious: Yes (Hospitalization)
  Sender: FDA-Public Use
  Company Number: US-BAYER-2011-010993

PATIENT
  Age: 69 Year
  Sex: Male

DRUGS (7)
  1. PRILOSEC [Concomitant]
     Indication: GASTROOESOPHAGEAL REFLUX DISEASE
     Dosage: UNK
  2. SORAFENIB (RAF KINASE INHIBITOR) [Suspect]
     Indication: RENAL CELL CARCINOMA
     Dosage: 400 MG, BID
     Route: 048
     Dates: start: 20110106
  3. ANTIHYPERTENSIVES [Concomitant]
     Dosage: UNK
  4. IMODIUM [Concomitant]
     Dosage: 1 DF, PRN
  5. SORAFENIB (RAF KINASE INHIBITOR) [Suspect]
     Dosage: 200 MG, QD
     Route: 048
  6. ZANTAC [Concomitant]
     Indication: GASTROOESOPHAGEAL REFLUX DISEASE
     Dosage: UNK
  7. METFORMIN HYDROCHLORIDE [Concomitant]
     Dosage: 1500 MG, QD
     Dates: start: 20100101

REACTIONS (10)
  - DIARRHOEA [None]
  - CONSTIPATION [None]
  - GLOSSODYNIA [None]
  - DYSPEPSIA [None]
  - GASTROOESOPHAGEAL REFLUX DISEASE [None]
  - NAUSEA [None]
  - MOBILITY DECREASED [None]
  - ADVERSE DRUG REACTION [None]
  - PRURITUS [None]
  - ERYTHEMA [None]
